FAERS Safety Report 4599688-4 (Version None)
Quarter: 2005Q1

REPORT INFORMATION
  Report Type: 
  Country: None (occurrence: None)
  Receive Date: 20050304
  Receipt Date: 20050304
  Transmission Date: 20050727
  Serious: Yes (Hospitalization)
  Sender: FDA-Public Use
  Company Number: None

PATIENT
  Sex: Female
  Weight: 70.6 kg

DRUGS (7)
  1. ZEVALIA /XYREM 90 [Suspect]
     Indication: B-CELL LYMPHOMA
     Dosage: 86 2 MLI  IX, IV OVER 30 MIN
     Route: 042
     Dates: start: 20050215
  2. AMITRIPTYIME [Concomitant]
  3. MULTI-VITAMIN [Concomitant]
  4. ZOLOFT [Concomitant]
  5. EXCEDRIN (MIGRAINE) [Concomitant]
  6. VICODEN [Concomitant]
  7. LORAZEPAM [Concomitant]

REACTIONS (2)
  - ABDOMINAL PAIN UPPER [None]
  - DIARRHOEA [None]
